FAERS Safety Report 6534088-9 (Version None)
Quarter: 2010Q1

REPORT INFORMATION
  Report Type: 
  Country: None (occurrence: None)
  Receive Date: 20100112
  Receipt Date: 20100106
  Transmission Date: 20100710
  Serious: Yes (Death, Hospitalization)
  Sender: FDA-Public Use
  Company Number: PHHY2010BR00787

PATIENT
  Sex: Female

DRUGS (8)
  1. COMTAN [Suspect]
     Dosage: 1 TABLET FOUR TIMES PER DAY
  2. STALEVO 100 [Suspect]
     Dosage: 1 TABLET AT 8:00 A.M., 1 TABLET AT MIDDAY, 1 TABLET AT 4:00 P.M. AND 1 TABLET AT 8:00 P.M
  3. STALEVO 100 [Suspect]
     Dosage: 250/25MG, ? TABLET 4 TIMES PER DAY
  4. EXELON [Suspect]
     Dosage: 1.5 MG, UNK
  5. QUETIAPINE FUMARATE [Concomitant]
     Dosage: 25 MG, QD
     Route: 048
     Dates: start: 20090825, end: 20091105
  6. MOTILIUM [Concomitant]
     Indication: GASTRIC DISORDER
     Dosage: UNK
     Route: 048
     Dates: start: 20090801, end: 20091105
  7. OMEPRAZOLE [Concomitant]
     Indication: GASTRIC DISORDER
     Dosage: UNK
     Route: 048
     Dates: start: 20090801, end: 20091105
  8. MAREVAN ^BRITISH DRUG HOUSES^ [Concomitant]
     Indication: THROMBOSIS
     Dosage: UNK
     Route: 048
     Dates: start: 20090501

REACTIONS (7)
  - CARDIOPULMONARY FAILURE [None]
  - CEREBRAL DISORDER [None]
  - DEHYDRATION [None]
  - DIARRHOEA [None]
  - MUSCULOSKELETAL STIFFNESS [None]
  - PNEUMONIA [None]
  - VOMITING [None]
